FAERS Safety Report 17930734 (Version 2)
Quarter: 2020Q3

REPORT INFORMATION
  Report Type: Report from Study
  Country: CA (occurrence: CA)
  Receive Date: 20200623
  Receipt Date: 20200706
  Transmission Date: 20201103
  Serious: Yes (Other)
  Sender: FDA-Public Use
  Company Number: CA-B.I. PHARMACEUTICALS,INC./RIDGEFIELD-2019-BI-106359

PATIENT
  Sex: Female

DRUGS (4)
  1. OFEV [Suspect]
     Active Substance: NINTEDANIB
     Route: 048
     Dates: end: 20200612
  2. OFEV [Suspect]
     Active Substance: NINTEDANIB
     Route: 048
     Dates: start: 20200111, end: 20200427
  3. AZITHROMYCIN ANHYDROUS. [Concomitant]
     Active Substance: AZITHROMYCIN ANHYDROUS
     Indication: PRODUCT USED FOR UNKNOWN INDICATION
     Route: 065
  4. OFEV [Suspect]
     Active Substance: NINTEDANIB
     Indication: IDIOPATHIC PULMONARY FIBROSIS
     Route: 048
     Dates: start: 20190925, end: 20191006

REACTIONS (21)
  - Chromaturia [Unknown]
  - Asthenia [Not Recovered/Not Resolved]
  - Productive cough [Unknown]
  - Vomiting [Not Recovered/Not Resolved]
  - Yellow skin [Unknown]
  - Weight decreased [Not Recovered/Not Resolved]
  - Transaminases increased [Recovered/Resolved]
  - Lower respiratory tract infection [Not Recovered/Not Resolved]
  - Cystitis [Not Recovered/Not Resolved]
  - Respiratory tract congestion [Unknown]
  - Decreased appetite [Not Recovered/Not Resolved]
  - Transaminases increased [Not Recovered/Not Resolved]
  - Pain in extremity [Not Recovered/Not Resolved]
  - Respiratory tract infection [Unknown]
  - Sinusitis [Unknown]
  - Drug intolerance [Not Recovered/Not Resolved]
  - Liver function test abnormal [Unknown]
  - Sinus congestion [Unknown]
  - Nausea [Not Recovered/Not Resolved]
  - Pyrexia [Recovered/Resolved]
  - Fatigue [Not Recovered/Not Resolved]
